FAERS Safety Report 5517850-0 (Version None)
Quarter: 2007Q4

REPORT INFORMATION
  Report Type: 
  Country: None (occurrence: None)
  Receive Date: 20071113
  Receipt Date: 20071105
  Transmission Date: 20080405
  Serious: Yes (Other)
  Sender: FDA-Public Use
  Company Number: S07-USA-05821-01

PATIENT
  Age: 55 Year
  Sex: Female
  Weight: 81.6475 kg

DRUGS (6)
  1. LEXAPRO [Suspect]
     Indication: DEPRESSION
     Dosage: 10 MG QD PO
     Route: 048
  2. PROVIGIL [Suspect]
     Indication: HYPERSOMNIA
     Dosage: 100 MG BID
     Dates: start: 20070907, end: 20070908
  3. PROVIGIL [Suspect]
     Indication: HYPERSOMNIA
     Dosage: 100 MG QD
     Dates: start: 20070909
  4. HORMONE REPLACEMENT THERAPY (NOS) [Concomitant]
  5. LORAZEPAM [Concomitant]
  6. ZYRTEC [Concomitant]

REACTIONS (2)
  - CONVULSION [None]
  - DRUG INTERACTION [None]
